FAERS Safety Report 15499071 (Version 1)
Quarter: 2018Q4

REPORT INFORMATION
  Report Type: Spontaneous
  Country: US (occurrence: US)
  Receive Date: 20181015
  Receipt Date: 20181015
  Transmission Date: 20190205
  Serious: No
  Sender: FDA-Public Use
  Company Number: None

PATIENT
  Age: 32 Year
  Sex: Female
  Weight: 56.25 kg

DRUGS (1)
  1. AIMOVIG [Suspect]
     Active Substance: ERENUMAB-AOOE
     Indication: MIGRAINE
     Dosage: ?          QUANTITY:4 INJECTION(S);OTHER FREQUENCY:1 A MONTH;?
     Route: 030
     Dates: start: 20180615

REACTIONS (1)
  - Alopecia [None]

NARRATIVE: CASE EVENT DATE: 20181015
